FAERS Safety Report 16134452 (Version 4)
Quarter: 2019Q2

REPORT INFORMATION
  Report Type: Report from Study
  Country: KR (occurrence: KR)
  Receive Date: 20190329
  Receipt Date: 20190529
  Transmission Date: 20190711
  Serious: Yes (Hospitalization)
  Sender: FDA-Public Use
  Company Number: KR-CELGENEUS-KOR-20190306439

PATIENT
  Age: 69 Year
  Sex: Female
  Weight: 68.2 kg

DRUGS (31)
  1. ACETAMINOPHEN. [Concomitant]
     Active Substance: ACETAMINOPHEN
     Indication: COLITIS
     Dosage: 650 MILLIGRAM
     Route: 048
     Dates: start: 20190321, end: 20190322
  2. ROSUVASTATIN. [Suspect]
     Active Substance: ROSUVASTATIN
     Indication: ACUTE MYELOID LEUKAEMIA
     Route: 048
     Dates: start: 20190123
  3. MOXIFLOXACIN. [Concomitant]
     Active Substance: MOXIFLOXACIN
     Indication: PAIN IN JAW
     Dosage: 400 MILLIGRAM
     Route: 048
     Dates: start: 20190305, end: 20190311
  4. MOXIFLOXACIN. [Concomitant]
     Active Substance: MOXIFLOXACIN
     Dosage: 400 MILLIGRAM
     Route: 041
     Dates: start: 20190305, end: 20190305
  5. HYDROXYUREA. [Concomitant]
     Active Substance: HYDROXYUREA
     Indication: LEUKOCYTOSIS
     Dosage: 3000 MILLIGRAM
     Route: 048
     Dates: start: 20190214, end: 20190218
  6. HYDROXYUREA. [Concomitant]
     Active Substance: HYDROXYUREA
     Dosage: 1500 MILLIGRAM
     Route: 048
     Dates: start: 20190219, end: 20190305
  7. HYDROXYUREA. [Concomitant]
     Active Substance: HYDROXYUREA
     Route: 048
     Dates: start: 20190405, end: 20190405
  8. ACETAMINOPHEN. [Concomitant]
     Active Substance: ACETAMINOPHEN
     Indication: PRODUCT USED FOR UNKNOWN INDICATION
     Route: 048
     Dates: start: 20190304, end: 20190304
  9. CHLORPHENIRAMINE MALEATE. [Concomitant]
     Active Substance: CHLORPHENIRAMINE MALEATE
     Indication: PROPHYLAXIS
     Route: 041
     Dates: start: 20190312, end: 20190312
  10. DIGOXIN. [Suspect]
     Active Substance: DIGOXIN
     Indication: ACUTE MYELOID LEUKAEMIA
     Route: 048
     Dates: start: 20190123
  11. MEGESTROL [Concomitant]
     Active Substance: MEGESTROL
     Indication: PROPHYLAXIS
     Dosage: 40 MILLIGRAM
     Route: 048
     Dates: start: 20190127, end: 20190219
  12. CIPROFLOXACIN. [Concomitant]
     Active Substance: CIPROFLOXACIN
     Dosage: 400 MILLIGRAM
     Route: 041
     Dates: start: 20190317, end: 20190318
  13. GASTER [Concomitant]
     Active Substance: FAMOTIDINE
     Indication: PROPHYLAXIS
     Dosage: 40 MILLIGRAM
     Route: 048
     Dates: start: 20181017
  14. HYDROXYUREA. [Concomitant]
     Active Substance: HYDROXYUREA
     Dosage: 1000 MILLIGRAM
     Route: 048
     Dates: start: 20190219, end: 20190304
  15. PETHIDINE [Concomitant]
     Active Substance: MEPERIDINE
     Indication: PROPHYLAXIS
     Route: 030
     Dates: start: 20190325, end: 20190325
  16. CHLORPHENIRAMINE MALEATE. [Concomitant]
     Active Substance: CHLORPHENIRAMINE MALEATE
     Route: 041
     Dates: start: 20190317, end: 20190317
  17. CALCIUM GLUCONATE. [Concomitant]
     Active Substance: CALCIUM GLUCONATE
     Indication: PROPHYLAXIS
     Route: 041
     Dates: start: 20190319, end: 20190319
  18. APETROL ES [Concomitant]
     Indication: PROPHYLAXIS
     Dosage: 650 MILLIGRAM
     Route: 048
     Dates: start: 20190220
  19. CC-90007 [Suspect]
     Active Substance: ENASIDENIB MESYLATE
     Indication: ACUTE MYELOID LEUKAEMIA
     Dosage: 100 MILLIGRAM
     Route: 048
     Dates: start: 20190124
  20. HYDROXYUREA. [Concomitant]
     Active Substance: HYDROXYUREA
     Dosage: 1000 MILLIGRAM
     Route: 048
     Dates: start: 20190307, end: 20190312
  21. HYDROXYUREA. [Concomitant]
     Active Substance: HYDROXYUREA
     Dosage: 1000 MILLIGRAM
     Route: 048
     Dates: start: 20190307, end: 20190311
  22. HYDROXYUREA. [Concomitant]
     Active Substance: HYDROXYUREA
     Dosage: 3000 MILLIGRAM
     Route: 048
     Dates: start: 20190406, end: 20190407
  23. HYDROXYUREA. [Concomitant]
     Active Substance: HYDROXYUREA
     Route: 048
     Dates: start: 20190408, end: 20190408
  24. CIPROFLOXACIN. [Concomitant]
     Active Substance: CIPROFLOXACIN
     Indication: COLITIS
     Route: 065
  25. HEXAMEDINE [Concomitant]
     Indication: PROPHYLAXIS
     Dosage: 30 MILLILITER
     Route: 050
     Dates: start: 20190318, end: 20190328
  26. VITAMIN K1 [Concomitant]
     Active Substance: PHYTONADIONE
     Indication: PROPHYLAXIS
     Route: 041
     Dates: start: 20190322, end: 20190322
  27. MOXIFLOXACIN. [Concomitant]
     Active Substance: MOXIFLOXACIN
     Indication: PYREXIA
     Route: 041
  28. TORSEM [Concomitant]
     Indication: OEDEMA
     Dosage: 2.5 MILLIGRAM
     Route: 048
     Dates: start: 20190208
  29. PHAZYME COMPLEX TAB [Concomitant]
     Indication: PROPHYLAXIS
     Dosage: 1 TABLET
     Route: 048
     Dates: start: 20190212, end: 20190218
  30. CIPROFLOXACIN. [Concomitant]
     Active Substance: CIPROFLOXACIN
     Indication: PROPHYLAXIS
     Dosage: 1000 MILLIGRAM
     Route: 048
     Dates: start: 20190213, end: 20190225
  31. NYSTATIN. [Concomitant]
     Active Substance: NYSTATIN
     Indication: PROPHYLAXIS
     Dosage: 30 MILLILITER
     Route: 050
     Dates: start: 20190318, end: 20190328

REACTIONS (1)
  - Colitis [Recovering/Resolving]

NARRATIVE: CASE EVENT DATE: 20190317
